FAERS Safety Report 26207429 (Version 1)
Quarter: 2025Q4

REPORT INFORMATION
  Report Type: Spontaneous
  Country: EU (occurrence: EU)
  Receive Date: 20251229
  Receipt Date: 20251229
  Transmission Date: 20260118
  Serious: Yes (Hospitalization)
  Sender: NOVARTIS
  Company Number: None

PATIENT
  Age: 60 Year
  Sex: Female
  Weight: 82 kg

DRUGS (6)
  1. LETROZOLE [Suspect]
     Active Substance: LETROZOLE
     Indication: Breast cancer
     Dosage: 1 DOSAGE FORM, QD
     Route: 048
     Dates: start: 20230501, end: 20251211
  2. ABEMACICLIB [Interacting]
     Active Substance: ABEMACICLIB
     Indication: Breast cancer
     Dosage: 1 DOSAGE FORM, Q12H
     Route: 048
     Dates: start: 20230501, end: 20251211
  3. CANNABIDIOL [Interacting]
     Active Substance: CANNABIDIOL
     Indication: Axial spondyloarthritis
     Dosage: 1 DOSAGE FORM, AS NECESSARY
     Route: 048
     Dates: start: 2025
  4. DISOPYRAMIDE [Concomitant]
     Active Substance: DISOPYRAMIDE
     Indication: Supraventricular extrasystoles
     Dosage: 10 MG, Q12H
     Route: 048
  5. LEVOTHYROXINE [Concomitant]
     Active Substance: LEVOTHYROXINE
     Indication: Hypothyroidism
     Dosage: 112.5 UG, QD
     Route: 048
  6. ACETAMINOPHEN [Concomitant]
     Active Substance: ACETAMINOPHEN
     Indication: Axial spondyloarthritis
     Dosage: 1 G
     Route: 048

REACTIONS (3)
  - Pulmonary embolism [Recovering/Resolving]
  - Embolism venous [Recovering/Resolving]
  - Drug interaction [Recovered/Resolved]

NARRATIVE: CASE EVENT DATE: 20250101
